FAERS Safety Report 8339963-0 (Version None)
Quarter: 2012Q2

REPORT INFORMATION
  Report Type: 
  Country: None (occurrence: None)
  Receive Date: 20120507
  Receipt Date: 20120503
  Transmission Date: 20120825
  Serious: Yes (Other)
  Sender: FDA-Public Use
  Company Number: US-PFIZER INC-2012109485

PATIENT
  Sex: Male
  Weight: 71 kg

DRUGS (2)
  1. CARBIDOPA + LEVODOPA [Concomitant]
     Indication: PARKINSON'S DISEASE
     Dosage: UNK
  2. CELEBREX [Suspect]
     Indication: BACK PAIN
     Dosage: 200 MG, AS NEEDED
     Route: 048
     Dates: start: 20120201

REACTIONS (3)
  - DRUG INEFFECTIVE [None]
  - SPINAL COLUMN STENOSIS [None]
  - SPONDYLITIS [None]
